FAERS Safety Report 5600360-X (Version None)
Quarter: 2008Q1

REPORT INFORMATION
  Report Type: 
  Country: None (occurrence: None)
  Receive Date: 20080118
  Receipt Date: 20080110
  Transmission Date: 20080703
  Serious: No
  Sender: FDA-Public Use
  Company Number: 20084607

PATIENT
  Sex: Male

DRUGS (1)
  1. LIORESAL [Suspect]
     Indication: MUSCLE SPASTICITY
     Dosage: 27.5 MCG, DAILY, INTRATHECAL
     Route: 039

REACTIONS (4)
  - HEADACHE [None]
  - HYPERSENSITIVITY [None]
  - INFLAMMATION [None]
  - PYREXIA [None]
